FAERS Safety Report 8983726 (Version 2)
Quarter: 2015Q2

REPORT INFORMATION
  Report Type: Report from Study
  Country: US (occurrence: US)
  Receive Date: 20121224
  Receipt Date: 20150626
  Transmission Date: 20150821
  Serious: Yes (Death, Other)
  Sender: FDA-Public Use
  Company Number: US-ROCHE-1126313

PATIENT
  Age: 62 Year
  Sex: Female
  Weight: 106 kg

DRUGS (18)
  1. AVASTIN [Suspect]
     Active Substance: BEVACIZUMAB
     Dosage: 09/JAN/2006, 30/JAN/2006, 13/MAR/2006, 15/MAY/2006, 05/JUN/2006, 26/JUN/2006, 24/APR/2006
     Route: 042
  2. TAXOTERE [Concomitant]
     Active Substance: DOCETAXEL
     Route: 065
     Dates: start: 200601
  3. CYTOXAN [Concomitant]
     Active Substance: CYCLOPHOSPHAMIDE
     Route: 065
  4. GEMZAR [Concomitant]
     Active Substance: GEMCITABINE HYDROCHLORIDE
     Route: 065
  5. PAXIL (UNITED STATES) [Concomitant]
  6. TAXOL [Concomitant]
     Active Substance: PACLITAXEL
     Route: 065
  7. FEMARA [Concomitant]
     Active Substance: LETROZOLE
     Route: 065
  8. FEMARA [Concomitant]
     Active Substance: LETROZOLE
     Dosage: PAST
     Route: 065
  9. ALOXI [Concomitant]
     Active Substance: PALONOSETRON HYDROCHLORIDE
     Route: 065
  10. DECADRON [Concomitant]
     Active Substance: DEXAMETHASONE
  11. TAMOXIFEN [Concomitant]
     Active Substance: TAMOXIFEN
  12. AVASTIN [Suspect]
     Active Substance: BEVACIZUMAB
     Dosage: 03/APR/2006
     Route: 042
  13. FASLODEX [Concomitant]
     Active Substance: FULVESTRANT
     Route: 065
     Dates: start: 200601
  14. ARANESP [Concomitant]
     Active Substance: DARBEPOETIN ALFA
     Route: 065
  15. AVASTIN [Suspect]
     Active Substance: BEVACIZUMAB
     Indication: BREAST CANCER FEMALE
     Route: 042
     Dates: start: 20060105
  16. AVASTIN [Suspect]
     Active Substance: BEVACIZUMAB
     Dosage: 20/FEB/2006
     Route: 042
  17. ADRIAMYCIN [Concomitant]
     Active Substance: DOXORUBICIN HYDROCHLORIDE
     Route: 065
  18. ZOMETA [Concomitant]
     Active Substance: ZOLEDRONIC ACID
     Route: 065

REACTIONS (15)
  - Vomiting [Unknown]
  - Bone pain [Unknown]
  - Stomatitis [Unknown]
  - Neuropathy peripheral [Unknown]
  - Pain [Recovering/Resolving]
  - Dyspepsia [Unknown]
  - Depression [Unknown]
  - Drug intolerance [Unknown]
  - Death [Fatal]
  - Fatigue [Unknown]
  - Tumour marker increased [Unknown]
  - Metastases to bone [Unknown]
  - Nausea [Unknown]
  - Oedema [Unknown]
  - Chest pain [Unknown]

NARRATIVE: CASE EVENT DATE: 20060109
